FAERS Safety Report 5249157-3 (Version None)
Quarter: 2007Q1

REPORT INFORMATION
  Report Type: 
  Country: None (occurrence: None)
  Receive Date: 20070228
  Receipt Date: 20070219
  Transmission Date: 20070707
  Serious: Yes (Other)
  Sender: FDA-Public Use
  Company Number: PHBS2007IT03322

PATIENT
  Age: 81 Year
  Sex: Female

DRUGS (3)
  1. TENORMIN [Concomitant]
     Route: 048
     Dates: start: 20060101, end: 20070124
  2. TICLID [Concomitant]
     Dosage: 250 MG, UNK
     Route: 048
  3. VOLTAREN [Suspect]
     Dosage: 100 MG/DAY
     Route: 054
     Dates: start: 20070109, end: 20070123

REACTIONS (5)
  - ASPARTATE AMINOTRANSFERASE INCREASED [None]
  - BLOOD CREATINE PHOSPHOKINASE INCREASED [None]
  - BLOOD UREA INCREASED [None]
  - HAEMATEMESIS [None]
  - MELAENA [None]
